FAERS Safety Report 6932305-4 (Version None)
Quarter: 2010Q3

REPORT INFORMATION
  Report Type: 
  Country: None (occurrence: None)
  Receive Date: 20100812
  Receipt Date: 20090215
  Transmission Date: 20110219
  Serious: No
  Sender: FDA-Public Use
  Company Number: 2009-01036

PATIENT
  Sex: Female
  Weight: 57.1532 kg

DRUGS (2)
  1. ZICAM COLD REMEDY GEL SWABS [Suspect]
     Dosage: QID X 1 DAY
     Dates: start: 20090207, end: 20090208
  2. MULTIPLE VITAMINS [Concomitant]

REACTIONS (1)
  - ANOSMIA [None]
